FAERS Safety Report 5139671-3 (Version None)
Quarter: 2006Q4

REPORT INFORMATION
  Report Type: 
  Country: None (occurrence: None)
  Receive Date: 20061024
  Receipt Date: 20061006
  Transmission Date: 20070319
  Serious: Yes (Life-Threatening, Hospitalization)
  Sender: FDA-Public Use
  Company Number: DSA_28834_2006

PATIENT
  Age: 89 Year
  Sex: Female

DRUGS (10)
  1. LORAZEPAM [Suspect]
     Indication: RESTLESSNESS
     Dosage: 1 MG Q DAY PO
     Route: 048
     Dates: start: 20060901, end: 20060922
  2. EFFEXOR [Suspect]
     Indication: DEPRESSION
     Dosage: 18.75 MG BID PO
     Route: 048
     Dates: start: 20060913, end: 20060917
  3. EFFEXOR [Suspect]
     Indication: DEPRESSION
     Dosage: 37.5 MG BID PO
     Route: 048
     Dates: start: 20060918, end: 20060922
  4. HALDOL [Suspect]
     Indication: RESTLESSNESS
     Dosage: 1 MG ONCE SC
     Route: 058
     Dates: start: 20060912, end: 20060912
  5. HALDOL [Suspect]
     Indication: RESTLESSNESS
     Dosage: 0.5 MG ONCE SC
     Route: 058
     Dates: start: 20060919, end: 20060919
  6. MYCOSTATIN [Suspect]
     Indication: FUNGAL INFECTION
     Dosage: 5 ML 5XD TP
     Route: 061
     Dates: start: 20060920, end: 20060922
  7. SEROQUEL [Suspect]
     Indication: RESTLESSNESS
     Dosage: 6.25 MG BID PO
     Route: 048
     Dates: start: 20060912, end: 20060922
  8. TEMGESIC [Concomitant]
  9. NORVASC [Concomitant]
  10. FOSAMAX [Concomitant]

REACTIONS (8)
  - C-REACTIVE PROTEIN INCREASED [None]
  - CONJUNCTIVITIS [None]
  - CREATININE RENAL CLEARANCE DECREASED [None]
  - HAEMATOCRIT DECREASED [None]
  - HAEMOGLOBIN DECREASED [None]
  - INTERNATIONAL NORMALISED RATIO INCREASED [None]
  - ORAL INTAKE REDUCED [None]
  - STEVENS-JOHNSON SYNDROME [None]
